FAERS Safety Report 4686295-8 (Version None)
Quarter: 2005Q2

REPORT INFORMATION
  Report Type: 
  Country: None (occurrence: None)
  Receive Date: 20050606
  Receipt Date: 20050602
  Transmission Date: 20051028
  Serious: Yes (Life-Threatening, Hospitalization)
  Sender: FDA-Public Use
  Company Number: S05-USA-01823-01

PATIENT
  Age: 69 Year
  Sex: Male
  Weight: 97.5234 kg

DRUGS (17)
  1. NAMENDA [Suspect]
     Indication: DEMENTIA ALZHEIMER'S TYPE
     Dosage: 5 MG QD PO
     Route: 048
     Dates: start: 20050209, end: 20050212
  2. DIGOXIN [Concomitant]
  3. ASPIRIN [Concomitant]
  4. ISOSORBIDE [Concomitant]
  5. AMIODARONE [Concomitant]
  6. FUROSEMIDE [Concomitant]
  7. METOPROLOL [Concomitant]
  8. AVAPRO [Concomitant]
  9. SINEMET [Concomitant]
  10. PLAVIX [Concomitant]
  11. SYNTHROID [Concomitant]
  12. ARICEPT [Concomitant]
  13. CENTRIUM SILVER [Concomitant]
  14. FLOMAX [Concomitant]
  15. PRAVACHOL [Concomitant]
  16. METOLAZONE [Concomitant]
  17. TYLENOL [Concomitant]

REACTIONS (4)
  - CONDITION AGGRAVATED [None]
  - DECREASED APPETITE [None]
  - FEELING ABNORMAL [None]
  - HYPERTENSION [None]
